FAERS Safety Report 9682498 (Version 3)
Quarter: 2014Q1

REPORT INFORMATION
  Report Type: Spontaneous
  Country: AU (occurrence: AU)
  Receive Date: 20131112
  Receipt Date: 20140117
  Transmission Date: 20141002
  Serious: Yes (Other)
  Sender: FDA-Public Use
  Company Number: AU-AMGEN-AUSSP2013051294

PATIENT
  Age: 54 Year
  Sex: Female

DRUGS (4)
  1. XGEVA [Suspect]
     Indication: METASTASES TO BONE
     Dosage: 120 MG, UNK
     Route: 058
     Dates: start: 20130709
  2. VITAMIN D                          /00107901/ [Concomitant]
  3. CALCIUM [Concomitant]
  4. CALCIUM PHOSPHATE [Concomitant]

REACTIONS (9)
  - Neoplasm malignant [Not Recovered/Not Resolved]
  - Malaise [Recovered/Resolved]
  - Bone pain [Unknown]
  - Myalgia [Unknown]
  - Musculoskeletal stiffness [Not Recovered/Not Resolved]
  - Mobility decreased [Recovered/Resolved]
  - Arthralgia [Recovered/Resolved]
  - Arthropathy [Not Recovered/Not Resolved]
  - Paraesthesia [Not Recovered/Not Resolved]
